FAERS Safety Report 25253410 (Version 1)
Quarter: 2025Q2

REPORT INFORMATION
  Report Type: Spontaneous
  Country: TR (occurrence: TR)
  Receive Date: 20250430
  Receipt Date: 20250430
  Transmission Date: 20250717
  Serious: Yes (Congenital Anomaly, Other)
  Sender: NOVARTIS
  Company Number: TR-002147023-NVSC2025TR068562

PATIENT
  Weight: 3.25 kg

DRUGS (1)
  1. CARBAMAZEPINE [Suspect]
     Active Substance: CARBAMAZEPINE
     Indication: Foetal exposure during pregnancy
     Route: 064

REACTIONS (3)
  - Foetal malformation [Unknown]
  - Hydronephrosis [Unknown]
  - Foetal exposure during pregnancy [Unknown]
